FAERS Safety Report 6060175-8 (Version None)
Quarter: 2009Q1

REPORT INFORMATION
  Report Type: 
  Country: None (occurrence: None)
  Receive Date: 20090128
  Receipt Date: 20090119
  Transmission Date: 20090719
  Serious: Yes (Other)
  Sender: FDA-Public Use
  Company Number: CHPA2009US00839

PATIENT
  Age: 26 Year
  Sex: Female
  Weight: 68 kg

DRUGS (3)
  1. EXCEDRIN (MIGRAINE) [Suspect]
     Indication: HEADACHE
     Dosage: 5 CAPLETS, IN A DAY ORAL, 1 DF, ORAL
     Route: 048
     Dates: start: 20090118, end: 20090118
  2. EXCEDRIN (MIGRAINE) [Suspect]
     Indication: HEADACHE
     Dosage: 5 CAPLETS, IN A DAY ORAL, 1 DF, ORAL
     Route: 048
     Dates: start: 20090118, end: 20090118
  3. ROBITUSSIN ^WHITEHALL-ROBINS^ (GUAIFENESIN) [Concomitant]

REACTIONS (5)
  - CHEST DISCOMFORT [None]
  - CHEST PAIN [None]
  - DYSPNOEA [None]
  - INAPPROPRIATE SCHEDULE OF DRUG ADMINISTRATION [None]
  - OVERDOSE [None]
